FAERS Safety Report 12229547 (Version 2)
Quarter: 2016Q2

REPORT INFORMATION
  Report Type: Report from Study
  Country: CA (occurrence: CA)
  Receive Date: 20160401
  Receipt Date: 20160518
  Transmission Date: 20160815
  Serious: Yes (Other)
  Sender: FDA-Public Use
  Company Number: CA-BEH-2016060756

PATIENT
  Age: 58 Year
  Sex: Female

DRUGS (3)
  1. HIZENTRA [Suspect]
     Active Substance: HUMAN IMMUNOGLOBULIN G
     Indication: IMMUNODEFICIENCY COMMON VARIABLE
     Dosage: PUSH METHOD
     Route: 058
     Dates: start: 20150915
  2. HIZENTRA [Suspect]
     Active Substance: HUMAN IMMUNOGLOBULIN G
     Indication: IMMUNODEFICIENCY COMMON VARIABLE
     Dosage: PUSH METHOD
     Route: 058
     Dates: start: 20150915
  3. HIZENTRA [Suspect]
     Active Substance: HUMAN IMMUNOGLOBULIN G
     Indication: LYMPHOMA
     Dosage: PUSH METHOD
     Route: 058
     Dates: start: 20150915

REACTIONS (6)
  - Chills [Recovering/Resolving]
  - Somnolence [Recovering/Resolving]
  - Lymphadenopathy [Not Recovered/Not Resolved]
  - Malaise [Recovering/Resolving]
  - Contrast media reaction [Recovering/Resolving]
  - Vomiting [Recovering/Resolving]

NARRATIVE: CASE EVENT DATE: 20160502
